FAERS Safety Report 7119945-7 (Version None)
Quarter: 2010Q4

REPORT INFORMATION
  Report Type: 
  Country: None (occurrence: None)
  Receive Date: 20101123
  Receipt Date: 20101108
  Transmission Date: 20110411
  Serious: Yes (Hospitalization)
  Sender: FDA-Public Use
  Company Number: JP-PFIZER INC-2010150624

PATIENT
  Sex: Female

DRUGS (1)
  1. SEIBULE [Suspect]
     Indication: DIABETES MELLITUS
     Route: 048

REACTIONS (1)
  - LOSS OF CONSCIOUSNESS [None]
